FAERS Safety Report 24448713 (Version 1)
Quarter: 2024Q4

REPORT INFORMATION
  Report Type: Spontaneous
  Country: FI (occurrence: FI)
  Receive Date: 20241017
  Receipt Date: 20241017
  Transmission Date: 20250114
  Serious: Yes (Hospitalization)
  Sender: JOHNSON AND JOHNSON
  Company Number: None

PATIENT
  Age: 76 Year
  Sex: Male

DRUGS (9)
  1. ERLEADA [Suspect]
     Active Substance: APALUTAMIDE
     Indication: Prostate cancer metastatic
     Dosage: 120 MG AAMUISIN
     Route: 048
     Dates: start: 20231110, end: 20240904
  2. TRIPTORELIN PAMOATE [Concomitant]
     Active Substance: TRIPTORELIN PAMOATE
     Indication: Prostate cancer
     Dosage: 1 ANNOS 6 KK VALEIN
     Route: 030
  3. OXYCORION DEPOT [Concomitant]
     Indication: Cancer pain
     Dosage: 3+2
     Route: 048
  4. DEXAMETHASONE [Concomitant]
     Active Substance: DEXAMETHASONE
     Indication: Neoplasm malignant
     Dosage: 1X1
     Route: 048
  5. LEVOTHYROXINE [Concomitant]
     Active Substance: LEVOTHYROXINE
     Indication: Hypothyroidism
     Dosage: 3 AND 2,5 TABLETS ON ALTERNATE DAYS /?3 JA 2,5 TBL VUOROPAIVIN
     Route: 048
  6. FUROSEMIDE [Concomitant]
     Active Substance: FUROSEMIDE
     Indication: Oedema
     Dosage: 1X1
     Route: 048
  7. METOPROLOL KRKA [METOPROLOL SUCCINATE] [Concomitant]
     Indication: Arrhythmia
     Dosage: 1X1
     Route: 048
  8. PANADOL FORTE [CAFFEINE;PARACETAMOL] [Concomitant]
     Indication: Pain
     Dosage: 1X3
     Route: 048
  9. MOBIC [Concomitant]
     Active Substance: MELOXICAM
     Indication: Pain
     Dosage: 1X1
     Route: 048

REACTIONS (3)
  - Hypothyroidism [Recovered/Resolved]
  - Pancreatitis [Recovered/Resolved]
  - Condition aggravated [Recovered/Resolved]

NARRATIVE: CASE EVENT DATE: 20240101
